FAERS Safety Report 7076756-9 (Version None)
Quarter: 2010Q4

REPORT INFORMATION
  Report Type: 
  Country: None (occurrence: None)
  Receive Date: 20101022
  Receipt Date: 20101019
  Transmission Date: 20110411
  Serious: Yes (Hospitalization, Disabling, Other)
  Sender: FDA-Public Use
  Company Number: 2009SP021075

PATIENT
  Age: 41 Year
  Sex: Female
  Weight: 66.2252 kg

DRUGS (2)
  1. NUVARING [Suspect]
     Indication: PRODUCT USED FOR UNKNOWN INDICATION
     Dates: start: 20040601, end: 20070817
  2. NUVARING [Suspect]

REACTIONS (9)
  - AUTOIMMUNE DISORDER [None]
  - CERVICAL CYST [None]
  - DEEP VEIN THROMBOSIS [None]
  - DEPRESSION [None]
  - MIGRAINE [None]
  - OVARIAN CYST [None]
  - PNEUMONIA [None]
  - PULMONARY EMBOLISM [None]
  - ROAD TRAFFIC ACCIDENT [None]
